FAERS Safety Report 9014016 (Version 1)
Quarter: 2013Q1

REPORT INFORMATION
  Report Type: Spontaneous
  Country: GB (occurrence: GB)
  Receive Date: 20130115
  Receipt Date: 20130115
  Transmission Date: 20140127
  Serious: Yes (Hospitalization, Disabling)
  Sender: FDA-Public Use
  Company Number: GB-PFIZER INC-2013012233

PATIENT
  Age: 27 Year
  Sex: Female

DRUGS (3)
  1. CHAMPIX [Suspect]
     Indication: SMOKING CESSATION THERAPY
     Dosage: I MG, TWICE DAILY [1ST TAB AM 2ND PM]
     Route: 048
     Dates: start: 20111228, end: 20120312
  2. TIBOLONE [Concomitant]
     Dosage: 2.5 MG
  3. VENLAFAXINE HYDROCHLORIDE [Concomitant]

REACTIONS (3)
  - Headache [Recovered/Resolved]
  - Abasia [Recovered/Resolved]
  - Nervous system disorder [Unknown]
